FAERS Safety Report 6147619-8 (Version None)
Quarter: 2009Q2

REPORT INFORMATION
  Report Type: 
  Country: None (occurrence: None)
  Receive Date: 20090402
  Receipt Date: 20090225
  Transmission Date: 20091009
  Serious: Yes (Other)
  Sender: FDA-Public Use
  Company Number: 57108

PATIENT
  Age: 83 Year
  Sex: Male
  Weight: 84.369 kg

DRUGS (1)
  1. CLADRIBINE [Suspect]
     Indication: HAIRY CELL LEUKAEMIA
     Dosage: 5 DAY REGIMEN IV
     Route: 042
     Dates: start: 20090223, end: 20090224

REACTIONS (1)
  - EXTRAVASATION [None]
